FAERS Safety Report 5888688-X (Version None)
Quarter: 2008Q3

REPORT INFORMATION
  Report Type: 
  Country: None (occurrence: None)
  Receive Date: 20080917
  Receipt Date: 20080911
  Transmission Date: 20090109
  Serious: Yes (Other)
  Sender: FDA-Public Use
  Company Number: TUK2008A00107

PATIENT
  Age: 77 Year
  Sex: Female

DRUGS (5)
  1. ACTOS [Suspect]
     Indication: DIABETES MELLITUS
     Dosage: 15 MG ORAL
     Route: 048
     Dates: start: 20080910, end: 20080910
  2. ACARBOSE [Concomitant]
  3. GLICLAZIDE (GLICLAZIDE) [Concomitant]
  4. LEVOTHYROXINE SODIUM [Concomitant]
  5. PRAVASTATIN [Concomitant]

REACTIONS (4)
  - HEADACHE [None]
  - PHOTOPSIA [None]
  - VISION BLURRED [None]
  - VISUAL IMPAIRMENT [None]
